FAERS Safety Report 6602683-4 (Version None)
Quarter: 2010Q1

REPORT INFORMATION
  Report Type: 
  Country: None (occurrence: None)
  Receive Date: 20100218
  Receipt Date: 20100127
  Transmission Date: 20100710
  Serious: Yes (Death, Hospitalization)
  Sender: FDA-Public Use
  Company Number: 2009AC000431

PATIENT
  Age: 69 Year
  Sex: Male

DRUGS (26)
  1. DIGOXIN [Suspect]
     Indication: ATRIAL FIBRILLATION
     Dosage: PO
     Route: 048
     Dates: start: 20071220, end: 20080308
  2. DIGOXIN [Suspect]
     Dosage: 0.25 MG;QD;PO
     Route: 048
     Dates: start: 20061030
  3. ACIPHEX [Concomitant]
  4. CORAL CALCIUM [Concomitant]
  5. COUMADIN [Concomitant]
  6. GINGKO [Concomitant]
  7. LEXAPRO [Concomitant]
  8. LOPID [Concomitant]
  9. MEGA-B COMPLEX [Concomitant]
  10. NAMENDA [Concomitant]
  11. PLAVIX [Concomitant]
  12. PROCARDIA [Concomitant]
  13. SAW PALMETTO [Concomitant]
  14. VITAMIN E [Concomitant]
  15. ZETIA [Concomitant]
  16. ZOLOFT [Concomitant]
  17. PACERONE [Concomitant]
  18. MEGACE [Concomitant]
  19. PROZAC [Concomitant]
  20. ARICEPT [Concomitant]
  21. WELLBUTRIN [Concomitant]
  22. GLUCOSAMINE [Concomitant]
  23. ACIDOPHILUS [Concomitant]
  24. MULTI-VITAMIN [Concomitant]
  25. ESTER-C [Concomitant]
  26. XANAX [Concomitant]

REACTIONS (21)
  - ABDOMINAL PAIN [None]
  - ASTHENIA [None]
  - ATRIAL FIBRILLATION [None]
  - DEMENTIA [None]
  - ECONOMIC PROBLEM [None]
  - GENERAL PHYSICAL HEALTH DETERIORATION [None]
  - HYPOXIA [None]
  - INCONTINENCE [None]
  - INJURY [None]
  - MYOPATHY [None]
  - MYOSITIS [None]
  - NAUSEA [None]
  - NEPHROLITHIASIS [None]
  - OSTEOPENIA [None]
  - PNEUMONIA ASPIRATION [None]
  - PRODUCT QUALITY ISSUE [None]
  - SOCIAL PROBLEM [None]
  - SPINAL CORD COMPRESSION [None]
  - UNEVALUABLE EVENT [None]
  - VOMITING [None]
  - WHEELCHAIR USER [None]
